FAERS Safety Report 24282498 (Version 1)
Quarter: 2024Q3

REPORT INFORMATION
  Report Type: Spontaneous
  Country: IN (occurrence: IN)
  Receive Date: 20240904
  Receipt Date: 20240904
  Transmission Date: 20241017
  Serious: Yes (Hospitalization)
  Sender: Alora Pharma
  Company Number: IN-ACELLA PHARMACEUTICALS, LLC-2024ALO00427

PATIENT
  Age: 1 Year
  Sex: Female

DRUGS (1)
  1. DEXTROMETHORPHAN [Suspect]
     Active Substance: DEXTROMETHORPHAN
     Indication: Cough
     Dosage: UNK, SYRUP
     Route: 048

REACTIONS (2)
  - Neurotoxicity [Recovered/Resolved]
  - Brain oedema [Recovered/Resolved]
